FAERS Safety Report 7434000-4 (Version None)
Quarter: 2011Q2

REPORT INFORMATION
  Report Type: 
  Country: None (occurrence: None)
  Receive Date: 20110420
  Receipt Date: 20110420
  Transmission Date: 20111010
  Serious: Yes (Life-Threatening)
  Sender: FDA-Public Use
  Company Number: None

PATIENT
  Age: 75 Year
  Sex: Male
  Weight: 74 kg

DRUGS (3)
  1. VORICONAZOLE [Suspect]
     Indication: OEDEMA
     Dosage: PER PT 1X 200MG AND 3X50MG TAB DAILY PO
     Route: 048
     Dates: start: 20110414, end: 20110417
  2. VORICONAZOLE [Suspect]
     Indication: FUNGAL INFECTION
     Dosage: PER PT 1X 200MG AND 3X50MG TAB DAILY PO
     Route: 048
     Dates: start: 20110414, end: 20110417
  3. VORICONAZOLE [Suspect]
     Indication: CELLULITIS
     Dosage: PER PT 1X 200MG AND 3X50MG TAB DAILY PO
     Route: 048
     Dates: start: 20110414, end: 20110417

REACTIONS (4)
  - BLOOD MAGNESIUM DECREASED [None]
  - TORSADE DE POINTES [None]
  - BLOOD POTASSIUM DECREASED [None]
  - LOSS OF CONSCIOUSNESS [None]
